FAERS Safety Report 8561258-0 (Version None)
Quarter: 2012Q3

REPORT INFORMATION
  Report Type: 
  Country: None (occurrence: None)
  Receive Date: 20120802
  Receipt Date: 20080728
  Transmission Date: 20120928
  Serious: Yes (Other)
  Sender: FDA-Public Use
  Company Number: CO-PFIZER INC-2012183528

PATIENT
  Age: 75 Year
  Sex: Male

DRUGS (11)
  1. OLMESARTAN MEDOXOMIL [Suspect]
     Indication: HYPERTENSION
     Dosage: 20 MG, ONCE DAILY
  2. METOPROLOL TARTRATE [Concomitant]
     Dosage: 50 MG, TWICE DAILY
  3. LOSARTAN [Concomitant]
     Dosage: 100 MG, ONCE DAILY
  4. OLMESARTAN MEDOXOMIL AND HYDROCHLOROTHIZIDE [Suspect]
     Indication: HYPERTENSION
     Dosage: [OLMESARTAN MEDOXOMIL 20 MG]/ [HYDROCHLOROTHIAZIDE 12.5MG] ONCE DAILY
  5. ACETYLSALICYLIC ACID [Concomitant]
     Dosage: 100 MG, ONCE DAILY
  6. CLONIDINE HYDROCHLORIDE [Concomitant]
     Dosage: 15 MG, TWICE DAILY
  7. NORVASC [Suspect]
     Indication: HYPERTENSION
     Dosage: 5 MG, TWICE DAILY
  8. LIPITOR [Suspect]
     Indication: DYSLIPIDAEMIA
     Dosage: 10 MG, ONCE DAILY
  9. LIPITOR [Suspect]
     Dosage: 20 MG, ONCE DAILY
  10. AMLODIPINE [Concomitant]
     Dosage: 10 MG, ONCE DAILY
  11. LOVASTATIN [Concomitant]
     Dosage: 20 MG, ONCE DAILY

REACTIONS (5)
  - MITRAL VALVE INCOMPETENCE [None]
  - INTERMITTENT CLAUDICATION [None]
  - ACUTE MYOCARDIAL INFARCTION [None]
  - DYSPNOEA EXERTIONAL [None]
  - VENTRICULAR HYPOKINESIA [None]
